FAERS Safety Report 5522108-X (Version None)
Quarter: 2007Q4

REPORT INFORMATION
  Report Type: 
  Country: None (occurrence: None)
  Receive Date: 20071120
  Receipt Date: 20071115
  Transmission Date: 20080405
  Serious: Yes (Other)
  Sender: FDA-Public Use
  Company Number: GB-WYE-G00620207

PATIENT
  Age: 43 Year
  Sex: Male

DRUGS (5)
  1. IBUPROFEN [Suspect]
     Dosage: 18 DOSE EVERY 1 TOT
     Dates: start: 20071029
  2. TRUVADA [Concomitant]
     Dosage: UNKNOWN
  3. SEPTRIN [Concomitant]
     Dosage: UNKNOWN
  4. REYATAZ [Suspect]
     Dosage: 60 DOSE EVERY 1 TOT
  5. ACYCLOVIR [Concomitant]
     Dosage: UNKNOWN

REACTIONS (5)
  - BLOOD TEST ABNORMAL [None]
  - OVERDOSE [None]
  - PYREXIA [None]
  - SOMNOLENCE [None]
  - SUICIDE ATTEMPT [None]
